FAERS Safety Report 4294259-1 (Version None)
Quarter: 2004Q1

REPORT INFORMATION
  Report Type: 
  Country: None (occurrence: None)
  Receive Date: 20040211
  Receipt Date: 20030725
  Transmission Date: 20041129
  Serious: No
  Sender: FDA-Public Use
  Company Number: US-GLAXOSMITHKLINE-A0418952A

PATIENT
  Age: 57 Year
  Sex: Female

DRUGS (4)
  1. LAMICTAL [Suspect]
     Dosage: 50MG TWICE PER DAY
     Route: 048
  2. EFFEXOR [Concomitant]
  3. DEPAKOTE [Concomitant]
  4. VALPROIC ACID [Concomitant]
     Dosage: 25MG TWICE PER DAY
     Route: 065

REACTIONS (3)
  - ERYTHEMA [None]
  - PRURITUS [None]
  - RASH MACULO-PAPULAR [None]
